FAERS Safety Report 4296618-X (Version None)
Quarter: 2004Q1

REPORT INFORMATION
  Report Type: 
  Country: None (occurrence: None)
  Receive Date: 20040126
  Receipt Date: 20030902
  Transmission Date: 20041129
  Serious: No
  Sender: FDA-Public Use
  Company Number: USA030945982

PATIENT
  Age: 40 Year
  Sex: Male
  Weight: 100 kg

DRUGS (8)
  1. STRATTERA [Suspect]
     Indication: ANXIETY
     Dosage: 60MG/DAY
     Dates: start: 20030828
  2. STRATTERA [Suspect]
     Indication: DISTURBANCE IN ATTENTION
     Dosage: 60MG/DAY
     Dates: start: 20030828
  3. DOXEPIN HCL [Concomitant]
  4. PAXIL [Concomitant]
  5. WELLBUTRIN [Concomitant]
  6. ALLEGRA [Concomitant]
  7. SINGULAIR [Concomitant]
  8. NIASPAN [Concomitant]

REACTIONS (3)
  - FATIGUE [None]
  - FEELING ABNORMAL [None]
  - INSOMNIA [None]
